FAERS Safety Report 4515149-2 (Version None)
Quarter: 2004Q4

REPORT INFORMATION
  Report Type: 
  Country: None (occurrence: None)
  Receive Date: 20041129
  Receipt Date: 20041129
  Transmission Date: 20050328
  Serious: Yes (Disabling)
  Sender: FDA-Public Use
  Company Number: None

PATIENT
  Sex: Male
  Weight: 102.0593 kg

DRUGS (5)
  1. CIPRO [Suspect]
     Indication: ANORECTAL INFECTION
     Dosage: 500 MG ONCE DAILY    (ON AND OFF, 1997 - 2004)
     Dates: start: 19970101, end: 20040101
  2. CIPRO [Suspect]
     Indication: DISEASE RECURRENCE
     Dosage: 500 MG ONCE DAILY    (ON AND OFF, 1997 - 2004)
     Dates: start: 19970101, end: 20040101
  3. CIPRO [Suspect]
     Indication: BLOOD DISORDER
     Dates: start: 20040201
  4. CIPRO [Suspect]
     Indication: INFECTION
     Dates: start: 20040201
  5. BENADRYL [Concomitant]

REACTIONS (14)
  - ANORECTAL INFECTION [None]
  - ASTHENIA [None]
  - BLOOD DISORDER [None]
  - BURNING SENSATION [None]
  - DISEASE RECURRENCE [None]
  - DYSSTASIA [None]
  - GAIT DISTURBANCE [None]
  - HYPOAESTHESIA [None]
  - INFECTION [None]
  - NEUROPATHY PERIPHERAL [None]
  - OEDEMA PERIPHERAL [None]
  - PAIN [None]
  - PARAESTHESIA [None]
  - TENDON DISORDER [None]
